FAERS Safety Report 9033829 (Version 1)
Quarter: 2013Q1

REPORT INFORMATION
  Report Type: Spontaneous
  Country: US (occurrence: US)
  Receive Date: 20130128
  Receipt Date: 20130128
  Transmission Date: 20140127
  Serious: Yes (Other)
  Sender: FDA-Public Use
  Company Number: US-AMGEN-USASP2012071386

PATIENT
  Age: 58 Year
  Sex: Female
  Weight: 126.98 kg

DRUGS (4)
  1. ENBREL [Suspect]
     Indication: PSORIATIC ARTHROPATHY
     Dosage: 50 MG, 2 TIMES/WK
     Route: 058
     Dates: start: 2005
  2. ENBREL [Suspect]
     Indication: RHEUMATOID ARTHRITIS
  3. METAGLIP [Concomitant]
     Dosage: 5-500 MG
  4. TRAMADOL HCL [Concomitant]
     Dosage: 50 MG, UNK

REACTIONS (1)
  - Uterine cancer [Unknown]
